FAERS Safety Report 5492483-3 (Version None)
Quarter: 2007Q4

REPORT INFORMATION
  Report Type: 
  Country: None (occurrence: None)
  Receive Date: 20071015
  Receipt Date: 20070724
  Transmission Date: 20080405
  Serious: No
  Sender: FDA-Public Use
  Company Number: 2007SP002644

PATIENT
  Age: 61 Year
  Sex: Female

DRUGS (1)
  1. LUNESTA [Suspect]
     Indication: INSOMNIA
     Dosage: 2 MG ORAL
     Route: 048
     Dates: start: 20070613, end: 20070615

REACTIONS (1)
  - NIGHTMARE [None]
